FAERS Safety Report 7990761-7 (Version None)
Quarter: 2011Q4

REPORT INFORMATION
  Report Type: 
  Country: None (occurrence: None)
  Receive Date: 20111219
  Receipt Date: 20111219
  Transmission Date: 20120403
  Serious: Yes (Other)
  Sender: FDA-Public Use
  Company Number: None

PATIENT
  Age: 62 Year
  Sex: Male
  Weight: 104.32 kg

DRUGS (1)
  1. CYMBALTA [Suspect]
     Dosage: 1
     Dates: start: 20111001, end: 20111210

REACTIONS (1)
  - SUICIDAL IDEATION [None]
